FAERS Safety Report 15737107 (Version 3)
Quarter: 2018Q4

REPORT INFORMATION
  Report Type: Spontaneous
  Country: US (occurrence: US)
  Receive Date: 20181218
  Receipt Date: 20181220
  Transmission Date: 20190205
  Serious: No
  Sender: FDA-Public Use
  Company Number: US-SA-2018SA339193

PATIENT
  Age: 62 Year
  Sex: Female

DRUGS (2)
  1. NOVOLOG [Concomitant]
     Active Substance: INSULIN ASPART
     Dosage: UNK UNK, QD
     Route: 065
  2. LANTUS SOLOSTAR [Suspect]
     Active Substance: INSULIN GLARGINE
     Indication: TYPE 2 DIABETES MELLITUS
     Dosage: 60 U, HS
     Route: 065
     Dates: start: 20181207

REACTIONS (4)
  - Blood glucose abnormal [Unknown]
  - Device operational issue [Unknown]
  - Visual impairment [Unknown]
  - Wrong technique in product usage process [Unknown]
